FAERS Safety Report 9320431 (Version 1)
Quarter: 2013Q2

REPORT INFORMATION
  Report Type: Spontaneous
  Country: BR (occurrence: BR)
  Receive Date: 20130530
  Receipt Date: 20130530
  Transmission Date: 20140414
  Serious: Yes (Hospitalization)
  Sender: FDA-Public Use
  Company Number: BR-B.I. PHARMACEUTICALS,INC./RIDGEFIELD-2013-BR-00639BR

PATIENT
  Age: 76 Year
  Sex: Female
  Weight: 75 kg

DRUGS (9)
  1. SPIRIVA RESPIMAT [Suspect]
     Indication: CHRONIC OBSTRUCTIVE PULMONARY DISEASE
     Dosage: 5 MCG
     Route: 055
     Dates: start: 2010
  2. BEROTEC [Concomitant]
     Indication: FATIGUE
  3. ATROVENT [Concomitant]
     Indication: FATIGUE
  4. ALENIA [Concomitant]
     Indication: FATIGUE
     Dates: start: 2010
  5. TIROXINA [Concomitant]
     Indication: HYPERTHYROIDISM
     Dosage: 100 MG
     Dates: start: 2003
  6. OMEPRAZOLE [Concomitant]
     Dates: start: 2010
  7. TEOFILINA [Concomitant]
     Indication: FATIGUE
     Dates: start: 2010
  8. ANALGESIC [Concomitant]
     Indication: RHEUMATIC DISORDER
  9. AEROLIN [Concomitant]
     Indication: FATIGUE
     Dates: start: 2010

REACTIONS (10)
  - Dyspnoea [Recovered/Resolved]
  - Drug ineffective [Not Recovered/Not Resolved]
  - Fatigue [Recovered/Resolved]
  - Lung infection [Recovered/Resolved]
  - Tremor [Recovered/Resolved]
  - Hypertension [Not Recovered/Not Resolved]
  - Blood cholesterol increased [Not Recovered/Not Resolved]
  - Thyroid disorder [Not Recovered/Not Resolved]
  - Cough [Not Recovered/Not Resolved]
  - Product quality issue [Unknown]
